FAERS Safety Report 20173462 (Version 1)
Quarter: 2021Q4

REPORT INFORMATION
  Report Type: Spontaneous
  Country: US (occurrence: None)
  Receive Date: 20211212
  Receipt Date: 20211212
  Transmission Date: 20220303
  Serious: No
  Sender: FDA-Public Use
  Company Number: 2021A811821

PATIENT
  Age: 225 Month
  Sex: Male
  Weight: 86.2 kg

DRUGS (1)
  1. PULMICORT FLEXHALER [Suspect]
     Active Substance: BUDESONIDE
     Indication: Asthma
     Dosage: 80/4.5, 2 INHALATIONS TWICE A DAY
     Route: 055
     Dates: end: 202107

REACTIONS (3)
  - Asthma [Not Recovered/Not Resolved]
  - Cough [Not Recovered/Not Resolved]
  - Dyspnoea [Not Recovered/Not Resolved]

NARRATIVE: CASE EVENT DATE: 20210701
